FAERS Safety Report 24014531 (Version 1)
Quarter: 2024Q2

REPORT INFORMATION
  Report Type: Spontaneous
  Country: US (occurrence: None)
  Receive Date: 20240625
  Receipt Date: 20240625
  Transmission Date: 20240716
  Serious: Yes (Other)
  Sender: FDA-Public Use
  Company Number: None

PATIENT
  Age: 86 Year
  Sex: Female

DRUGS (1)
  1. LENALIDOMIDE [Suspect]
     Active Substance: LENALIDOMIDE
     Indication: B-cell lymphoma
     Dosage: 5MG QD ORAL
     Route: 048
     Dates: start: 20231002

REACTIONS (2)
  - Asthenia [None]
  - Ischaemic stroke [None]

NARRATIVE: CASE EVENT DATE: 20240621
